FAERS Safety Report 9898034 (Version 1)
Quarter: 2014Q1

REPORT INFORMATION
  Report Type: Spontaneous
  Country: CH (occurrence: CH)
  Receive Date: 20140214
  Receipt Date: 20140214
  Transmission Date: 20141002
  Serious: Yes (Hospitalization, Other)
  Sender: FDA-Public Use
  Company Number: CH-ASTRAZENECA-2014SE09132

PATIENT
  Age: 64 Year
  Sex: Female

DRUGS (19)
  1. NEXIUM [Suspect]
     Route: 048
  2. CIPRALEX [Interacting]
     Indication: DEPRESSION
     Route: 048
     Dates: start: 201312, end: 20140107
  3. CIPRALEX [Interacting]
     Indication: DEPRESSION
     Route: 048
     Dates: start: 20140111
  4. CIPRALEX [Interacting]
     Indication: DEPRESSION
     Route: 048
     Dates: start: 20140122
  5. TEMGESIC [Interacting]
     Indication: CANCER PAIN
     Route: 060
  6. TRANSTEC [Interacting]
     Indication: CANCER PAIN
     Route: 062
  7. AFINITOR [Interacting]
     Indication: BREAST CANCER STAGE IV
     Route: 048
     Dates: start: 20130503, end: 20130829
  8. AFINITOR [Interacting]
     Indication: BREAST CANCER STAGE IV
     Route: 048
     Dates: start: 20130830, end: 20131220
  9. AFINITOR [Interacting]
     Indication: BREAST CANCER STAGE IV
     Dosage: AFTER THE 22-JAN-2014 10MG/DAY AND EVERY 2ND DAY+5 MG/DAY ADDITION
     Route: 048
  10. AROMASIN [Concomitant]
     Route: 048
  11. XGEVA [Concomitant]
     Dosage: PER 2 MONTHS
  12. IMPORTAL [Concomitant]
     Route: 048
  13. XANAX [Concomitant]
     Route: 048
  14. SERESTA [Concomitant]
     Route: 048
  15. DAFALGAN [Concomitant]
     Route: 048
  16. IRFEN [Concomitant]
     Route: 048
  17. MAGNESIUM [Concomitant]
     Route: 048
  18. ARANESP [Concomitant]
     Dosage: 3 OCCASIONS (29-AUG-2013, 26-SEP-2013, 28-NOV-2013)
  19. ARANESP [Concomitant]
     Dosage: TO 10 MG 1 PER DAY AND 5 MG EVERY SECOND DAY
     Dates: start: 20131220

REACTIONS (7)
  - Drug interaction [Unknown]
  - Electrocardiogram QT prolonged [Recovered/Resolved]
  - Toxicity to various agents [Unknown]
  - Urinary tract infection [Unknown]
  - Renal failure [Unknown]
  - Hypokalaemia [Unknown]
  - Haematotoxicity [Unknown]
